FAERS Safety Report 24601554 (Version 1)
Quarter: 2024Q4

REPORT INFORMATION
  Report Type: Spontaneous
  Country: US (occurrence: US)
  Receive Date: 20241111
  Receipt Date: 20241111
  Transmission Date: 20250115
  Serious: No
  Sender: ALEXION PHARMACEUTICALS
  Company Number: 202411USA002509US

PATIENT

DRUGS (17)
  1. BREZTRI [Suspect]
     Active Substance: BUDESONIDE\FORMOTEROL\GLYCOPYRROLATE
     Indication: Product used for unknown indication
  2. BREZTRI [Suspect]
     Active Substance: BUDESONIDE\FORMOTEROL\GLYCOPYRROLATE
  3. BREZTRI [Suspect]
     Active Substance: BUDESONIDE\FORMOTEROL\GLYCOPYRROLATE
  4. BREZTRI [Suspect]
     Active Substance: BUDESONIDE\FORMOTEROL\GLYCOPYRROLATE
  5. CARVEDILOL [Suspect]
     Active Substance: CARVEDILOL
     Indication: Product used for unknown indication
  6. OFEV [Suspect]
     Active Substance: NINTEDANIB
     Indication: Idiopathic pulmonary fibrosis
     Dosage: 200 MILLIGRAM, Q12H
  7. OFEV [Suspect]
     Active Substance: NINTEDANIB
     Dosage: 200 MILLIGRAM, Q12H
  8. OFEV [Suspect]
     Active Substance: NINTEDANIB
     Dosage: 200 MILLIGRAM, Q12H
  9. OFEV [Suspect]
     Active Substance: NINTEDANIB
     Dosage: 200 MILLIGRAM, Q12H
  10. OFEV [Suspect]
     Active Substance: NINTEDANIB
     Dosage: 300 MILLIGRAM, Q12H
  11. OFEV [Suspect]
     Active Substance: NINTEDANIB
     Dosage: 300 MILLIGRAM, Q12H
  12. OFEV [Suspect]
     Active Substance: NINTEDANIB
     Dosage: 300 MILLIGRAM, Q12H
  13. OFEV [Suspect]
     Active Substance: NINTEDANIB
     Dosage: 300 MILLIGRAM, Q12H
  14. OFEV [Suspect]
     Active Substance: NINTEDANIB
     Dosage: 150 MILLIGRAM, SINGLE
  15. OFEV [Suspect]
     Active Substance: NINTEDANIB
     Dosage: 150 MILLIGRAM, SINGLE
  16. OFEV [Suspect]
     Active Substance: NINTEDANIB
     Dosage: 150 MILLIGRAM, SINGLE
  17. OFEV [Suspect]
     Active Substance: NINTEDANIB
     Dosage: 150 MILLIGRAM, SINGLE

REACTIONS (14)
  - Headache [Not Recovered/Not Resolved]
  - Nausea [Recovering/Resolving]
  - Illness [Recovering/Resolving]
  - Vomiting [Recovering/Resolving]
  - Nasopharyngitis [Recovering/Resolving]
  - Decreased appetite [Unknown]
  - Dyspnoea [Unknown]
  - Vomiting [Recovered/Resolved]
  - Off label use [Unknown]
  - Nausea [Recovered/Resolved]
  - Diarrhoea [Recovered/Resolved]
  - Infection [Recovering/Resolving]
  - Drug intolerance [Unknown]
  - Hypersomnia [Unknown]
